FAERS Safety Report 7617396-X (Version None)
Quarter: 2011Q3

REPORT INFORMATION
  Report Type: 
  Country: None (occurrence: None)
  Receive Date: 20110718
  Receipt Date: 20110713
  Transmission Date: 20111222
  Serious: No
  Sender: FDA-Public Use
  Company Number: US-PFIZER INC-2011158588

PATIENT
  Sex: Female

DRUGS (2)
  1. NORVASC [Suspect]
     Dosage: UNK
  2. ATENOLOL [Suspect]
     Dosage: UNK

REACTIONS (6)
  - FATIGUE [None]
  - MOVEMENT DISORDER [None]
  - PAIN IN EXTREMITY [None]
  - DIARRHOEA [None]
  - SWELLING [None]
  - ARTHRITIS [None]
